FAERS Safety Report 8020182-2 (Version None)
Quarter: 2012Q1

REPORT INFORMATION
  Report Type: 
  Country: None (occurrence: None)
  Receive Date: 20120103
  Receipt Date: 20111220
  Transmission Date: 20120608
  Serious: Yes (Other)
  Sender: FDA-Public Use
  Company Number: IT-ELI_LILLY_AND_COMPANY-IT201112001617

PATIENT
  Sex: Female

DRUGS (8)
  1. METFORMIN HCL [Concomitant]
  2. ASPIRIN [Concomitant]
  3. BYETTA [Suspect]
     Dosage: 5 UG, BID
     Dates: start: 20110614
  4. BYETTA [Suspect]
     Dosage: 10 UG, EACH EVENING
     Dates: start: 20110920
  5. CALCIUM CHANNEL BLOCKERS [Concomitant]
  6. LASIX [Concomitant]
  7. VALSARTAN/HYDROCHLOORTHIAZIDE [Concomitant]
  8. BYETTA [Suspect]
     Dosage: 10 UG, BID

REACTIONS (6)
  - ALANINE AMINOTRANSFERASE INCREASED [None]
  - ASTHENIA [None]
  - ASPARTATE AMINOTRANSFERASE INCREASED [None]
  - NAUSEA [None]
  - WEIGHT DECREASED [None]
  - GAMMA-GLUTAMYLTRANSFERASE INCREASED [None]
